FAERS Safety Report 4585327-5 (Version None)
Quarter: 2005Q1

REPORT INFORMATION
  Report Type: 
  Country: None (occurrence: None)
  Receive Date: 20050214
  Receipt Date: 20041228
  Transmission Date: 20050727
  Serious: Yes (Hospitalization, Disabling)
  Sender: FDA-Public Use
  Company Number: 05-108

PATIENT
  Age: 59 Year
  Sex: Female

DRUGS (5)
  1. DEXAMETHASONE [Suspect]
     Indication: MULTIPLE MYELOMA
     Dosage: 40MG/DAY ORAL
     Route: 048
     Dates: start: 20020712, end: 20020729
  2. DEXAMETHASONE [Suspect]
     Indication: MYELOMA RECURRENCE
     Dosage: 40MG/DAY ORAL
     Route: 048
     Dates: start: 20020712, end: 20020729
  3. FONDAPARINUX [Concomitant]
  4. VANCOMYCIN [Concomitant]
  5. CEFEPIME [Concomitant]

REACTIONS (7)
  - CONFUSIONAL STATE [None]
  - MENINGITIS ASEPTIC [None]
  - MUSCULOSKELETAL STIFFNESS [None]
  - MYOCLONUS [None]
  - PUPILLARY REFLEX IMPAIRED [None]
  - STUPOR [None]
  - TREMOR [None]
